FAERS Safety Report 14291997 (Version 2)
Quarter: 2018Q1

REPORT INFORMATION
  Report Type: Spontaneous
  Country: BR (occurrence: BR)
  Receive Date: 20171215
  Receipt Date: 20180202
  Transmission Date: 20180509
  Serious: Yes (Hospitalization, Other)
  Sender: FDA-Public Use
  Company Number: BR-ABBVIE-13X-020-1088516-00

PATIENT
  Age: 37 Year
  Sex: Male
  Weight: 63 kg

DRUGS (15)
  1. DEPAKENE [Suspect]
     Active Substance: VALPROIC ACID
     Indication: SEIZURE
     Dosage: 1 TABLET IN THE MORNING/1 AT NIGHT
     Route: 048
     Dates: start: 2011
  2. HIDANTAL [Concomitant]
     Active Substance: PHENYTOIN SODIUM
     Indication: SEIZURE
     Route: 048
     Dates: start: 2010
  3. SERFALESTILINA [Concomitant]
     Indication: PAIN
     Dosage: 2 OR 3 TABLETS WHEN NEEDED
     Route: 048
  4. CAPTOPRIL. [Concomitant]
     Active Substance: CAPTOPRIL
     Indication: BLOOD PRESSURE MANAGEMENT
     Route: 048
     Dates: start: 2011
  5. UNKNOWN DRUGS [Concomitant]
     Active Substance: UNSPECIFIED INGREDIENT
     Indication: TENDONITIS
     Route: 065
  6. FENOCRIS [Concomitant]
     Indication: SEIZURE
     Route: 048
  7. CARBAMAZEPINE. [Concomitant]
     Active Substance: CARBAMAZEPINE
     Route: 048
     Dates: start: 2014
  8. CLONAZEPAM. [Concomitant]
     Active Substance: CLONAZEPAM
     Indication: SLEEP DISORDER THERAPY
     Route: 048
     Dates: start: 2011, end: 20171203
  9. GARDENAL [Concomitant]
     Active Substance: PHENOBARBITAL
     Indication: SEIZURE
     Route: 048
     Dates: start: 1996
  10. FENOCRIS [Concomitant]
     Dosage: DOSAGE: 1 TABLET IN MORNING AND 1 TABLET IN AFTERNOON
     Route: 048
  11. ROPRIN [Concomitant]
     Indication: MENTAL IMPAIRMENT
     Dosage: 1 TABLET BEFORE SLEEP
     Route: 048
     Dates: start: 2011
  12. CAPTOPRIL. [Concomitant]
     Active Substance: CAPTOPRIL
     Indication: HYPERTENSION
     Route: 048
  13. DICLOFENAC [Concomitant]
     Active Substance: DICLOFENAC
     Indication: PAIN
     Dosage: 2 OR 3 TABLETS WHEN NEEDED
     Route: 048
  14. DEPAKENE [Suspect]
     Active Substance: VALPROIC ACID
     Indication: EPILEPSY
     Route: 048
  15. CARBAMAZEPINE. [Concomitant]
     Active Substance: CARBAMAZEPINE
     Indication: PRODUCT USED FOR UNKNOWN INDICATION
     Route: 048

REACTIONS (31)
  - Jaw fracture [Recovered/Resolved]
  - Loss of consciousness [Recovered/Resolved]
  - Epilepsy [Recovered/Resolved]
  - Somnolence [Unknown]
  - Loss of consciousness [Unknown]
  - Hyperhidrosis [Unknown]
  - Fall [Unknown]
  - Sneezing [Unknown]
  - Headache [Not Recovered/Not Resolved]
  - Visual impairment [Not Recovered/Not Resolved]
  - Dyspepsia [Not Recovered/Not Resolved]
  - Headache [Unknown]
  - Laceration [Unknown]
  - Feeling drunk [Unknown]
  - Pain in extremity [Unknown]
  - Memory impairment [Unknown]
  - Hypersensitivity [Not Recovered/Not Resolved]
  - Hangover [Not Recovered/Not Resolved]
  - Insomnia [Unknown]
  - Renal colic [Unknown]
  - Tongue injury [Recovered/Resolved]
  - Chest pain [Not Recovered/Not Resolved]
  - Dyspnoea [Not Recovered/Not Resolved]
  - Reading disorder [Unknown]
  - Unevaluable event [Unknown]
  - Loss of consciousness [Unknown]
  - Nausea [Recovered/Resolved]
  - Seizure [Unknown]
  - Influenza [Not Recovered/Not Resolved]
  - Feeling abnormal [Unknown]
  - Throat irritation [Recovered/Resolved]

NARRATIVE: CASE EVENT DATE: 201305
